FAERS Safety Report 25104173 (Version 2)
Quarter: 2025Q2

REPORT INFORMATION
  Report Type: Report from Study
  Country: CO (occurrence: CO)
  Receive Date: 20250321
  Receipt Date: 20250407
  Transmission Date: 20250717
  Serious: Yes (Other)
  Sender: UCB
  Company Number: CO-UCBSA-2025015584

PATIENT
  Age: 14 Year
  Sex: Female

DRUGS (2)
  1. LACOSAMIDE [Suspect]
     Active Substance: LACOSAMIDE
     Indication: Epilepsy
     Dosage: 100 MILLIGRAM, 2X/DAY (BID)
     Route: 048
     Dates: start: 20220909, end: 20241219
  2. LACOSAMIDE [Concomitant]
     Active Substance: LACOSAMIDE
     Indication: Epilepsy
     Route: 048
     Dates: start: 20241220, end: 20250324

REACTIONS (8)
  - Syncope [Recovered/Resolved]
  - Dyspnoea [Recovered/Resolved]
  - Hyperhidrosis [Recovered/Resolved]
  - Seizure [Recovered/Resolved]
  - Neoplasm progression [Unknown]
  - Product dispensing issue [Unknown]
  - Therapy interrupted [Unknown]
  - Product substitution issue [Unknown]

NARRATIVE: CASE EVENT DATE: 20241220
